FAERS Safety Report 15310346 (Version 1)
Quarter: 2018Q3

REPORT INFORMATION
  Report Type: Spontaneous
  Country: US (occurrence: US)
  Receive Date: 20180813
  Receipt Date: 20180813
  Transmission Date: 20181010
  Serious: Yes (Life-Threatening, Hospitalization)
  Sender: FDA-Public Use
  Company Number: None

PATIENT
  Age: 73 Year
  Sex: Female
  Weight: 72.57 kg

DRUGS (5)
  1. LYRICA [Concomitant]
     Active Substance: PREGABALIN
  2. ALLEGRA [Concomitant]
     Active Substance: FEXOFENADINE HYDROCHLORIDE
  3. BABY ASPIRIN [Concomitant]
     Active Substance: ASPIRIN
  4. NARATRIPTAN TABLETS USP 2.5MG [Suspect]
     Active Substance: NARATRIPTAN HYDROCHLORIDE
     Indication: MIGRAINE
     Dosage: ?          QUANTITY:9 DF DOSAGE FORM;?
     Route: 048
     Dates: start: 20180502, end: 20180507
  5. MULTI?VIT [Concomitant]
     Active Substance: VITAMINS

REACTIONS (5)
  - Pain in jaw [None]
  - Hyperhidrosis [None]
  - Bruxism [None]
  - Chest pain [None]
  - Cardiospasm [None]

NARRATIVE: CASE EVENT DATE: 20180527
